FAERS Safety Report 7444127-9 (Version None)
Quarter: 2011Q2

REPORT INFORMATION
  Report Type: 
  Country: None (occurrence: None)
  Receive Date: 20110419
  Receipt Date: 20110413
  Transmission Date: 20111010
  Serious: Yes (Other)
  Sender: FDA-Public Use
  Company Number: 2011SP016582

PATIENT
  Age: 46 Year
  Sex: Male

DRUGS (1)
  1. CLARITIN [Suspect]
     Indication: ALLERGY TO ANIMAL
     Dosage: 10 MG;QD;PO
     Route: 048
     Dates: start: 20110404, end: 20110404

REACTIONS (1)
  - EPISTAXIS [None]
